FAERS Safety Report 9432529 (Version 1)
Quarter: 2013Q3

REPORT INFORMATION
  Report Type: Spontaneous
  Country: US (occurrence: None)
  Receive Date: 20130730
  Receipt Date: 20130730
  Transmission Date: 20140515
  Serious: Yes (Life-Threatening)
  Sender: FDA-Public Use
  Company Number: None

PATIENT
  Age: 62 Year
  Sex: Female
  Weight: 67.13 kg

DRUGS (1)
  1. ATELVIA [Suspect]
     Indication: OSTEOPOROSIS
     Dates: start: 20130714

REACTIONS (12)
  - Pain [None]
  - Chest pain [None]
  - Dyspepsia [None]
  - Abdominal pain upper [None]
  - Back pain [None]
  - Diarrhoea [None]
  - Vomiting [None]
  - Nausea [None]
  - Myalgia [None]
  - Bone pain [None]
  - Dizziness [None]
  - Headache [None]
